FAERS Safety Report 9167162 (Version 1)
Quarter: 2013Q1

REPORT INFORMATION
  Report Type: Spontaneous
  Country: US (occurrence: US)
  Receive Date: 20130318
  Receipt Date: 20130318
  Transmission Date: 20140127
  Serious: Yes (Hospitalization)
  Sender: FDA-Public Use
  Company Number: US-BIOGENIDEC-2013BI024130

PATIENT
  Age: 40 Year
  Sex: Female

DRUGS (1)
  1. TYSABRI [Suspect]
     Indication: MULTIPLE SCLEROSIS
     Route: 042
     Dates: start: 20120625, end: 20130201

REACTIONS (6)
  - Ovarian cystectomy [Not Recovered/Not Resolved]
  - Oophorectomy [Recovered/Resolved]
  - Ureteric injury [Not Recovered/Not Resolved]
  - Nephrostomy tube placement [Not Recovered/Not Resolved]
  - Ureteral disorder [Not Recovered/Not Resolved]
  - Ovarian disorder [Not Recovered/Not Resolved]
